FAERS Safety Report 4649868-4 (Version None)
Quarter: 2005Q2

REPORT INFORMATION
  Report Type: 
  Country: None (occurrence: None)
  Receive Date: 20050502
  Receipt Date: 20040511
  Transmission Date: 20051028
  Serious: Yes (Life-Threatening, Hospitalization)
  Sender: FDA-Public Use
  Company Number: US-MERCK-0405USA00949

PATIENT
  Age: 64 Year
  Sex: Male
  Weight: 71 kg

DRUGS (27)
  1. EMEND [Suspect]
     Indication: PROPHYLAXIS OF NAUSEA AND VOMITING
     Route: 048
     Dates: start: 20040213, end: 20040213
  2. EMEND [Suspect]
     Route: 048
     Dates: start: 20040214, end: 20040217
  3. ZOFRAN [Concomitant]
     Route: 042
  4. DACARBAZINE [Concomitant]
     Route: 042
     Dates: start: 20040201
  5. VINBLASTINE SULFATE [Suspect]
     Route: 042
     Dates: start: 20040201
  6. PROLEUKIN [Concomitant]
     Route: 042
     Dates: start: 20040201
  7. PROLEUKIN [Concomitant]
     Route: 042
     Dates: start: 20040201
  8. PROLEUKIN [Concomitant]
     Route: 042
     Dates: start: 20040201
  9. PROLEUKIN [Concomitant]
     Route: 042
     Dates: start: 20040201
  10. PROLEUKIN [Concomitant]
     Route: 065
     Dates: start: 20040201
  11. INTERFERON ALFA [Concomitant]
     Route: 058
     Dates: start: 20040201
  12. CISPLATIN [Concomitant]
     Route: 042
     Dates: start: 20040201
  13. [THERAPY UNSPECIFIED] [Concomitant]
     Route: 065
  14. PROTONIX [Concomitant]
     Route: 065
  15. ATIVAN [Concomitant]
     Indication: NAUSEA
     Route: 065
  16. INTRON A [Concomitant]
     Route: 065
  17. BENADRYL [Concomitant]
     Route: 065
  18. TYLENOL [Concomitant]
     Route: 065
  19. REGLAN [Concomitant]
     Route: 065
  20. BACTROBAN [Concomitant]
     Route: 065
  21. EUCERIN CREME [Concomitant]
     Route: 065
  22. DEMEROL [Concomitant]
     Route: 065
  23. ATARAX [Concomitant]
     Route: 065
  24. LOMOTIL [Concomitant]
     Route: 065
  25. VASELINE [Concomitant]
     Route: 065
  26. NEULASTA [Concomitant]
     Route: 065
     Dates: start: 20040201
  27. OPIUM [Concomitant]
     Route: 065

REACTIONS (9)
  - DRUG INTERACTION [None]
  - FATIGUE [None]
  - FEELING ABNORMAL [None]
  - MEDICATION ERROR [None]
  - PANCYTOPENIA [None]
  - PNEUMONIA [None]
  - PYREXIA [None]
  - RESPIRATORY TRACT INFECTION [None]
  - SEPSIS [None]
